FAERS Safety Report 23993288 (Version 1)
Quarter: 2024Q2

REPORT INFORMATION
  Report Type: Spontaneous
  Country: US (occurrence: US)
  Receive Date: 20240620
  Receipt Date: 20240620
  Transmission Date: 20240716
  Serious: No
  Sender: FDA-Public Use
  Company Number: US-JNJFOC-20240610292

PATIENT
  Age: 54 Year
  Sex: Female
  Weight: 63.6 kg

DRUGS (7)
  1. TYLENOL [Suspect]
     Active Substance: ACETAMINOPHEN
     Indication: Headache
     Route: 065
     Dates: start: 202405
  2. TYLENOL [Suspect]
     Active Substance: ACETAMINOPHEN
     Indication: Pain
  3. TYLENOL [Suspect]
     Active Substance: ACETAMINOPHEN
     Indication: Myalgia
  4. UPTRAVI [Concomitant]
     Active Substance: SELEXIPAG
     Indication: Pulmonary hypertension
     Route: 048
  5. UPTRAVI [Concomitant]
     Active Substance: SELEXIPAG
     Route: 048
     Dates: start: 202405
  6. AMBRISENTAN [Concomitant]
     Active Substance: AMBRISENTAN
     Indication: Product used for unknown indication
     Route: 065
  7. TADALAFIL [Concomitant]
     Active Substance: TADALAFIL
     Indication: Product used for unknown indication
     Route: 065

REACTIONS (1)
  - Drug ineffective [Unknown]

NARRATIVE: CASE EVENT DATE: 20240501
